FAERS Safety Report 18048178 (Version 1)
Quarter: 2020Q3

REPORT INFORMATION
  Report Type: Spontaneous
  Country: US (occurrence: US)
  Receive Date: 20200720
  Receipt Date: 20200720
  Transmission Date: 20201103
  Serious: Yes (Disabling, Other)
  Sender: FDA-Public Use
  Company Number: None

PATIENT
  Age: 49 Year
  Sex: Female
  Weight: 101.25 kg

DRUGS (40)
  1. BUMEX [Concomitant]
     Active Substance: BUMETANIDE
  2. GRANISETRON [Concomitant]
     Active Substance: GRANISETRON
  3. KETOCONAZOLE. [Concomitant]
     Active Substance: KETOCONAZOLE
  4. VENTOLIN [Concomitant]
     Active Substance: ALBUTEROL SULFATE
  5. NORCO [Concomitant]
     Active Substance: ACETAMINOPHEN\HYDROCODONE BITARTRATE
  6. OXYBUTYNIN. [Concomitant]
     Active Substance: OXYBUTYNIN CHLORIDE
  7. EPIPEN [Concomitant]
     Active Substance: EPINEPHRINE
  8. IMDUR [Concomitant]
     Active Substance: ISOSORBIDE MONONITRATE
  9. LILETTA [Concomitant]
     Active Substance: LEVONORGESTREL
  10. ALLEGRA [Concomitant]
     Active Substance: FEXOFENADINE HYDROCHLORIDE
  11. MAGNESIUM CITRATE. [Concomitant]
     Active Substance: MAGNESIUM CITRATE
  12. MAGNESIUM OXIDE. [Concomitant]
     Active Substance: MAGNESIUM OXIDE
  13. BREO ELLIPTA [Concomitant]
     Active Substance: FLUTICASONE FUROATE\VILANTEROL TRIFENATATE
  14. CYMBALTA [Concomitant]
     Active Substance: DULOXETINE HYDROCHLORIDE
  15. REQUIP [Concomitant]
     Active Substance: ROPINIROLE HYDROCHLORIDE
  16. TOPAMAX [Concomitant]
     Active Substance: TOPIRAMATE
  17. ZOFRAN [Concomitant]
     Active Substance: ONDANSETRON HYDROCHLORIDE
  18. VIIBRYD [Concomitant]
     Active Substance: VILAZODONE HYDROCHLORIDE
  19. ACARBOSE. [Concomitant]
     Active Substance: ACARBOSE
  20. LISINOPRIL. [Concomitant]
     Active Substance: LISINOPRIL
  21. ATIVAN [Concomitant]
     Active Substance: LORAZEPAM
  22. MEGESTROL ACETATE. [Concomitant]
     Active Substance: MEGESTROL ACETATE
  23. MINOCYCLINE [Concomitant]
     Active Substance: MINOCYCLINE HYDROCHLORIDE
  24. VITAMIN B?6 [Concomitant]
     Active Substance: PYRIDOXINE
  25. LIDOCAINE. [Concomitant]
     Active Substance: LIDOCAINE
  26. ASSURED INSTANT HAND SANITIZER ALOE [Suspect]
     Active Substance: ALCOHOL
  27. ATARAX [Concomitant]
     Active Substance: HYDROXYZINE HYDROCHLORIDE
  28. BACLOFEN. [Concomitant]
     Active Substance: BACLOFEN
  29. CARDIZEM CD [Concomitant]
     Active Substance: DILTIAZEM HYDROCHLORIDE
  30. PRAZOSIN HCL [Concomitant]
     Active Substance: PRAZOSIN HYDROCHLORIDE
  31. SCOPOLAMINE [Concomitant]
     Active Substance: SCOPOLAMINE
  32. HUMULIN R U?500 [Concomitant]
     Active Substance: INSULIN HUMAN
  33. IMODIUM [Concomitant]
     Active Substance: LOPERAMIDE HYDROCHLORIDE
  34. LATUDA [Concomitant]
     Active Substance: LURASIDONE HYDROCHLORIDE
  35. PRILOSEC [Concomitant]
     Active Substance: OMEPRAZOLE MAGNESIUM
  36. ASSURED INSTANT HAND SANITIZER [Suspect]
     Active Substance: ALCOHOL
     Indication: ANTIVIRAL PROPHYLAXIS
     Dosage: ?          OTHER STRENGTH:V/V;QUANTITY:6 6 BOTTLES;?
     Route: 061
     Dates: start: 20200310, end: 20200713
  37. DIAMOX SEQUELS [Concomitant]
     Active Substance: ACETAZOLAMIDE
  38. FARXIGA [Concomitant]
     Active Substance: DAPAGLIFLOZIN PROPANEDIOL
  39. SEROQUEL [Concomitant]
     Active Substance: QUETIAPINE FUMARATE
  40. L?METHYLFOLATE CITRATE [Concomitant]

REACTIONS (4)
  - Blood methanol increased [None]
  - Nausea [None]
  - Product quality issue [None]
  - Headache [None]

NARRATIVE: CASE EVENT DATE: 20200310
